FAERS Safety Report 18244416 (Version 4)
Quarter: 2023Q4

REPORT INFORMATION
  Report Type: Report from Study
  Country: JP (occurrence: JP)
  Receive Date: 20200908
  Receipt Date: 20231226
  Transmission Date: 20240110
  Serious: Yes (Death, Hospitalization)
  Sender: FDA-Public Use
  Company Number: JP-ACTELION-A-CH2018-167526

PATIENT
  Age: 74 Year
  Sex: Male
  Weight: 52.2 kg

DRUGS (27)
  1. TRACLEER [Suspect]
     Active Substance: BOSENTAN
     Indication: Skin ulcer
     Dosage: 62.5 MG, BID
     Route: 048
     Dates: start: 20160219, end: 20200401
  2. TRACLEER [Suspect]
     Active Substance: BOSENTAN
     Indication: Pulmonary arterial hypertension
     Dosage: 62.5 MG, QD
     Route: 048
     Dates: start: 20160115, end: 20160218
  3. TRACLEER [Suspect]
     Active Substance: BOSENTAN
     Route: 048
     Dates: start: 20160219, end: 20180110
  4. TRACLEER [Suspect]
     Active Substance: BOSENTAN
     Dosage: 125MG IN THE MORNING, 62.5MG IN THE EVENING
     Route: 048
     Dates: start: 20180111
  5. UPTRAVI [Suspect]
     Active Substance: SELEXIPAG
     Indication: Pulmonary arterial hypertension
     Route: 048
     Dates: start: 20190402, end: 20190513
  6. UPTRAVI [Suspect]
     Active Substance: SELEXIPAG
     Route: 048
     Dates: start: 20190514, end: 20191009
  7. UPTRAVI [Suspect]
     Active Substance: SELEXIPAG
     Route: 048
     Dates: start: 20191010, end: 20200108
  8. UPTRAVI [Suspect]
     Active Substance: SELEXIPAG
     Route: 048
     Dates: start: 20200109, end: 20200130
  9. UPTRAVI [Suspect]
     Active Substance: SELEXIPAG
     Route: 048
     Dates: start: 20200131, end: 20200401
  10. BERAPROST SODIUM [Concomitant]
     Active Substance: BERAPROST SODIUM
     Indication: Pulmonary arterial hypertension
     Dosage: 120 MCG, QD
     Dates: end: 20200401
  11. BERAPROST SODIUM [Concomitant]
     Active Substance: BERAPROST SODIUM
     Indication: Systemic scleroderma
     Route: 048
     Dates: start: 20110120, end: 20160218
  12. BERAPROST SODIUM [Concomitant]
     Active Substance: BERAPROST SODIUM
     Route: 048
     Dates: start: 20160219, end: 20160428
  13. BERAPROST SODIUM [Concomitant]
     Active Substance: BERAPROST SODIUM
     Route: 048
     Dates: start: 20160707, end: 20160728
  14. BERAPROST SODIUM [Concomitant]
     Active Substance: BERAPROST SODIUM
     Route: 048
     Dates: start: 20160729, end: 20170329
  15. BERAPROST SODIUM [Concomitant]
     Active Substance: BERAPROST SODIUM
     Route: 048
     Dates: start: 20170330, end: 20170524
  16. BERAPROST SODIUM [Concomitant]
     Active Substance: BERAPROST SODIUM
     Route: 048
     Dates: start: 20170525
  17. CILOSTAZOL [Concomitant]
     Active Substance: CILOSTAZOL
     Indication: Systemic scleroderma
     Dosage: 100 MG, QD
     Route: 048
     Dates: start: 20140515, end: 20200401
  18. PREDONINE [Concomitant]
     Active Substance: PREDNISOLONE
     Dosage: 8 MG, QD
     Dates: end: 20200401
  19. ATOVAQUONE [Concomitant]
     Active Substance: ATOVAQUONE
     Indication: Prophylaxis
     Dosage: 1500 MG, QD
     Dates: end: 20200401
  20. LASIX [Concomitant]
     Active Substance: FUROSEMIDE
     Dosage: 20 MG, QD
     Dates: end: 20200401
  21. FAMOTIDINE [Concomitant]
     Active Substance: FAMOTIDINE
     Indication: Prophylaxis
     Dosage: 20 MG, QD
     Dates: end: 20200401
  22. CARBOCYSTEINE [Concomitant]
     Active Substance: CARBOCYSTEINE
     Indication: Chronic obstructive pulmonary disease
     Dosage: 1500 MG, QD
     Dates: end: 20200401
  23. ALFAROL [Concomitant]
     Active Substance: ALFACALCIDOL
     Indication: Prophylaxis
     Dosage: 0.25 MG, QD
     Dates: end: 20200401
  24. FEBUXOSTAT [Concomitant]
     Active Substance: FEBUXOSTAT
     Dosage: 10 MG, QD
     Dates: end: 20200401
  25. COLCHICINE [Concomitant]
     Active Substance: COLCHICINE
     Indication: Pericardial effusion
     Dosage: 0.5 MG, QD
     Route: 048
     Dates: start: 20161209, end: 20200401
  26. LIVALO [Concomitant]
     Active Substance: PITAVASTATIN CALCIUM
     Dosage: 2 MG, QD
     Dates: end: 20200116
  27. OLODATEROL HYDROCHLORIDE\TIOTROPIUM BROMIDE MONOHYDRATE [Concomitant]
     Active Substance: OLODATEROL HYDROCHLORIDE\TIOTROPIUM BROMIDE MONOHYDRATE
     Dosage: 2 DF, QD
     Dates: end: 20200401

REACTIONS (9)
  - Scleroderma [Fatal]
  - Pneumonia bacterial [Fatal]
  - Pericardial effusion [Recovering/Resolving]
  - Chest discomfort [Recovering/Resolving]
  - Dyspnoea [Recovering/Resolving]
  - Pericardial drainage [Unknown]
  - Hepatic function abnormal [Recovered/Resolved]
  - Alanine aminotransferase increased [Recovered/Resolved]
  - Aspartate aminotransferase increased [Recovered/Resolved]

NARRATIVE: CASE EVENT DATE: 20160815
